FAERS Safety Report 5894838-1 (Version None)
Quarter: 2008Q3

REPORT INFORMATION
  Report Type: 
  Country: None (occurrence: None)
  Receive Date: 20080922
  Receipt Date: 20080916
  Transmission Date: 20090109
  Serious: Yes (Hospitalization)
  Sender: FDA-Public Use
  Company Number: MSTR-NO-0809S-0069

PATIENT
  Age: 53 Year
  Sex: Male

DRUGS (2)
  1. METASTRON [Suspect]
     Indication: METASTATIC PAIN
     Dosage: SINGLE DOSE, IV
     Route: 042
     Dates: start: 20080909, end: 20080909
  2. DOCETACEL (TAXOTERE) [Concomitant]

REACTIONS (1)
  - BONE PAIN [None]
